FAERS Safety Report 11587449 (Version 2)
Quarter: 2015Q4

REPORT INFORMATION
  Report Type: Spontaneous
  Country: DE (occurrence: DE)
  Receive Date: 20151001
  Receipt Date: 20151005
  Transmission Date: 20160304
  Serious: Yes (Hospitalization, Other)
  Sender: FDA-Public Use
  Company Number: PHHY2015DE095359

PATIENT
  Age: 25 Year
  Sex: Male

DRUGS (8)
  1. LEPONEX [Suspect]
     Active Substance: CLOZAPINE
     Indication: PRODUCT USED FOR UNKNOWN INDICATION
     Dosage: 400 MG, DAILY (100-100-0-200 MG)
     Route: 065
     Dates: end: 20110411
  2. ABILIFY [Suspect]
     Active Substance: ARIPIPRAZOLE
     Indication: PRODUCT USED FOR UNKNOWN INDICATION
     Dosage: 7.5 MG, QD
     Route: 065
     Dates: start: 20110329, end: 20110404
  3. METOPROLOL [Concomitant]
     Active Substance: METOPROLOL
     Indication: PRODUCT USED FOR UNKNOWN INDICATION
     Dosage: 47.5 MG, QD
     Route: 065
     Dates: start: 2007
  4. LEPONEX [Suspect]
     Active Substance: CLOZAPINE
     Dosage: 200 MG
     Route: 065
  5. ORFIRIL [Concomitant]
     Active Substance: VALPROIC ACID
     Dosage: 900 MG, QD
     Route: 065
     Dates: start: 20110405
  6. LEPONEX [Suspect]
     Active Substance: CLOZAPINE
     Dosage: 350 MG, QD
     Route: 065
     Dates: start: 20110412, end: 20110417
  7. LEPONEX [Suspect]
     Active Substance: CLOZAPINE
     Dosage: 300 MG, QD
     Route: 065
     Dates: start: 20110418
  8. ORFIRIL [Concomitant]
     Active Substance: VALPROIC ACID
     Indication: PROPHYLAXIS
     Dosage: 600 MG, QD
     Route: 065
     Dates: start: 20110404

REACTIONS (3)
  - Generalised tonic-clonic seizure [Recovered/Resolved]
  - Epilepsy [Unknown]
  - Drug interaction [Unknown]

NARRATIVE: CASE EVENT DATE: 2007
